FAERS Safety Report 18940842 (Version 1)
Quarter: 2021Q1

REPORT INFORMATION
  Report Type: Spontaneous
  Country: US (occurrence: US)
  Receive Date: 20210225
  Receipt Date: 20210225
  Transmission Date: 20210420
  Serious: Yes (Hospitalization, Other)
  Sender: FDA-Public Use
  Company Number: US-NOVOPROD-788012

PATIENT
  Age: 74 Year
  Sex: Female

DRUGS (1)
  1. TRESIBA [Suspect]
     Active Substance: INSULIN DEGLUDEC
     Indication: PRODUCT USED FOR UNKNOWN INDICATION
     Dosage: 62 UNITS
     Route: 065
     Dates: start: 200701

REACTIONS (7)
  - Cyst [Unknown]
  - Contusion [Unknown]
  - Pain in extremity [Unknown]
  - Fall [Unknown]
  - Tooth fracture [Unknown]
  - Synovial cyst [Unknown]
  - Head injury [Unknown]

NARRATIVE: CASE EVENT DATE: 20201202
